FAERS Safety Report 6108150-9 (Version None)
Quarter: 2009Q1

REPORT INFORMATION
  Report Type: 
  Country: None (occurrence: None)
  Receive Date: 20090309
  Receipt Date: 20090225
  Transmission Date: 20090719
  Serious: Yes (Other)
  Sender: FDA-Public Use
  Company Number: CA-ELI_LILLY_AND_COMPANY-CA200902007366

PATIENT
  Age: 54 Year
  Sex: Female

DRUGS (5)
  1. CYMBALTA [Suspect]
     Indication: DEPRESSION
     Dosage: 60 MG, UNK
     Dates: start: 20090209
  2. PARIET [Concomitant]
  3. INDAPAMIDE [Concomitant]
  4. TIAZAC /00489702/ [Concomitant]
  5. IMOVANE [Concomitant]

REACTIONS (7)
  - ANXIETY [None]
  - BLOOD CREATINE PHOSPHOKINASE INCREASED [None]
  - CHEST PAIN [None]
  - DRUG HYPERSENSITIVITY [None]
  - FLUSHING [None]
  - LIVER FUNCTION TEST ABNORMAL [None]
  - NAUSEA [None]
